FAERS Safety Report 23467737 (Version 1)
Quarter: 2024Q1

REPORT INFORMATION
  Report Type: Spontaneous
  Country: US (occurrence: US)
  Receive Date: 20240201
  Receipt Date: 20240201
  Transmission Date: 20240410
  Serious: No
  Sender: FDA-Public Use
  Company Number: US-INCYTE CORPORATION-2024IN000461

PATIENT

DRUGS (3)
  1. OPZELURA [Suspect]
     Active Substance: RUXOLITINIB PHOSPHATE
     Indication: Dermatitis atopic
     Route: 065
  2. CIBINQO [Concomitant]
     Active Substance: ABROCITINIB
     Indication: Dermatitis atopic
     Dosage: 100 MILLIGRAM
     Route: 065
  3. VTAMA [Concomitant]
     Active Substance: TAPINAROF
     Indication: Dermatitis atopic
     Route: 065

REACTIONS (2)
  - Dermatitis atopic [Unknown]
  - Off label use [Unknown]
